FAERS Safety Report 4560044-6 (Version None)
Quarter: 2005Q1

REPORT INFORMATION
  Report Type: 
  Country: None (occurrence: None)
  Receive Date: 20050125
  Receipt Date: 20050113
  Transmission Date: 20050727
  Serious: Yes (Death)
  Sender: FDA-Public Use
  Company Number: US-JNJFOC-20050103658

PATIENT
  Sex: Female
  Weight: 55.34 kg

DRUGS (6)
  1. INFLIXIMAB [Suspect]
     Indication: RHEUMATOID ARTHRITIS
     Route: 042
  2. CALCIUM GLUCONATE [Concomitant]
  3. PREDNISONE [Concomitant]
  4. TRENTAL [Concomitant]
  5. MIACALCIN [Concomitant]
  6. VITAMIN D [Concomitant]

REACTIONS (2)
  - MYOCARDIAL INFARCTION [None]
  - TOE AMPUTATION [None]
